FAERS Safety Report 4868479-9 (Version None)
Quarter: 2005Q4

REPORT INFORMATION
  Report Type: 
  Country: None (occurrence: None)
  Receive Date: 20051223
  Receipt Date: 20051213
  Transmission Date: 20060501
  Serious: Yes (Other)
  Sender: FDA-Public Use
  Company Number: 2005169190

PATIENT
  Sex: Male
  Weight: 83.4619 kg

DRUGS (1)
  1. VIAGRA [Suspect]
     Indication: ILL-DEFINED DISORDER
     Dosage: ORAL
     Route: 048

REACTIONS (7)
  - ERECTILE DYSFUNCTION [None]
  - FEAR [None]
  - HEART RATE INCREASED [None]
  - HYPERTENSION [None]
  - SELF-MEDICATION [None]
  - TONGUE NEOPLASM MALIGNANT STAGE UNSPECIFIED [None]
  - TREATMENT NONCOMPLIANCE [None]
